FAERS Safety Report 7302808-1 (Version None)
Quarter: 2011Q1

REPORT INFORMATION
  Report Type: 
  Country: None (occurrence: None)
  Receive Date: 20110218
  Receipt Date: 20101217
  Transmission Date: 20110831
  Serious: No
  Sender: FDA-Public Use
  Company Number: US-BAYER-2011-010151

PATIENT
  Sex: Female
  Weight: 73 kg

DRUGS (3)
  1. INSULIN [Concomitant]
     Dosage: UNK UNK, QD
  2. ALEVE (CAPLET) [Suspect]
     Indication: PAIN
     Dosage: 440 MG, QD
  3. GLIPIZIDE [Concomitant]

REACTIONS (1)
  - PAIN [None]
